FAERS Safety Report 4733417-6 (Version None)
Quarter: 2005Q3

REPORT INFORMATION
  Report Type: 
  Country: None (occurrence: None)
  Receive Date: 20050729
  Receipt Date: 20050721
  Transmission Date: 20060218
  Serious: Yes (Hospitalization, Other)
  Sender: FDA-Public Use
  Company Number: GBWYE789901JUL05

PATIENT
  Age: 7 Year
  Sex: Female

DRUGS (5)
  1. ADVIL [Suspect]
     Indication: ABDOMINAL PAIN
     Dosage: 150 MG, ORAL
     Route: 048
     Dates: start: 20041204, end: 20041204
  2. DICLOFENAC (DICLOFENAC) [Suspect]
     Indication: ABDOMINAL PAIN
     Dosage: 25 MG, RECTAL
     Route: 054
     Dates: start: 20041202, end: 20041202
  3. CEFTRIAXONE [Concomitant]
  4. ONDANSETRON HCL [Concomitant]
  5. ACETAMINOPHEN [Concomitant]

REACTIONS (2)
  - RENAL FAILURE ACUTE [None]
  - RENAL TUBULAR NECROSIS [None]
